FAERS Safety Report 7829819-1 (Version None)
Quarter: 2011Q4

REPORT INFORMATION
  Report Type: 
  Country: None (occurrence: None)
  Receive Date: 20111020
  Receipt Date: 20111020
  Transmission Date: 20120403
  Serious: Yes (Other)
  Sender: FDA-Public Use
  Company Number: None

PATIENT
  Age: 20 Year
  Sex: Female
  Weight: 62.1 kg

DRUGS (2)
  1. PURINETHOL [Concomitant]
  2. HUMIRA [Suspect]
     Indication: CROHN'S DISEASE
     Dosage: HUMIRA 40MG WEEKLY SQ
     Route: 058
     Dates: start: 20101206

REACTIONS (1)
  - MALIGNANT MELANOMA [None]
